FAERS Safety Report 25188230 (Version 1)
Quarter: 2025Q2

REPORT INFORMATION
  Report Type: Spontaneous
  Country: US (occurrence: US)
  Receive Date: 20250411
  Receipt Date: 20250411
  Transmission Date: 20250717
  Serious: Yes (Death, Other)
  Sender: TAKEDA
  Company Number: US-TAKEDA-2025TUS035444

PATIENT
  Sex: Female

DRUGS (11)
  1. ROZEREM [Suspect]
     Active Substance: RAMELTEON
     Indication: Product used for unknown indication
  2. DIPHENHYDRAMINE [Suspect]
     Active Substance: DIPHENHYDRAMINE
     Indication: Product used for unknown indication
  3. AMBIEN [Suspect]
     Active Substance: ZOLPIDEM TARTRATE
     Indication: Product used for unknown indication
     Dosage: UNK UNK, QD
     Dates: start: 2023
  4. XANAX [Suspect]
     Active Substance: ALPRAZOLAM
     Indication: Product used for unknown indication
  5. METHOCARBAMOL [Suspect]
     Active Substance: METHOCARBAMOL
     Indication: Product used for unknown indication
  6. VALIUM [Suspect]
     Active Substance: DIAZEPAM
     Indication: Product used for unknown indication
  7. LUNESTA [Suspect]
     Active Substance: ESZOPICLONE
     Indication: Product used for unknown indication
  8. SONATA [Suspect]
     Active Substance: ZALEPLON
     Indication: Product used for unknown indication
  9. RESTORIL [Suspect]
     Active Substance: TEMAZEPAM
     Indication: Product used for unknown indication
  10. ATIVAN [Suspect]
     Active Substance: LORAZEPAM
     Indication: Product used for unknown indication
  11. MELATONIN [Suspect]
     Active Substance: MELATONIN
     Indication: Product used for unknown indication

REACTIONS (2)
  - Cardiac arrest [Fatal]
  - Product prescribing error [Unknown]
